FAERS Safety Report 5427846-5 (Version None)
Quarter: 2007Q3

REPORT INFORMATION
  Report Type: 
  Country: None (occurrence: None)
  Receive Date: 20070826
  Receipt Date: 20070810
  Transmission Date: 20080115
  Serious: Yes (Hospitalization)
  Sender: FDA-Public Use
  Company Number: CLOF-10637

PATIENT
  Age: 10 Year
  Sex: Male
  Weight: 50 kg

DRUGS (32)
  1. CLOFARABINE. MFR: GENZYME [Suspect]
     Indication: ACUTE LYMPHOCYTIC LEUKAEMIA
     Dosage: 28 MG QD X 5 IV
     Route: 042
     Dates: start: 20060908, end: 20060912
  2. CLOFARABINE. MFR: GENZYME [Suspect]
     Indication: ACUTE LYMPHOCYTIC LEUKAEMIA
     Dosage: 28 MG QD IV
     Route: 042
     Dates: start: 20061013, end: 20061016
  3. CLOFARABINE. MFR: GENZYME [Suspect]
     Indication: ACUTE LYMPHOCYTIC LEUKAEMIA
     Dosage: 29 MG QD IV
     Route: 042
     Dates: start: 20061124, end: 20061127
  4. CLOFARABINE. MFR: GENZYME [Suspect]
     Indication: ACUTE LYMPHOCYTIC LEUKAEMIA
     Dosage: 30 MG QD IV
     Route: 042
     Dates: start: 20061226, end: 20061229
  5. CLOFARABINE. MFR: GENZYME [Suspect]
     Indication: ACUTE LYMPHOCYTIC LEUKAEMIA
     Dates: start: 20070131, end: 20070203
  6. CLOFARABINE. MFR: GENZYME [Suspect]
     Indication: ACUTE LYMPHOCYTIC LEUKAEMIA
     Dates: start: 20070320, end: 20070323
  7. CLOFARABINE. MFR: GENZYME [Suspect]
     Indication: ACUTE LYMPHOCYTIC LEUKAEMIA
     Dosage: 29 MG QD IV
     Route: 042
     Dates: start: 20070508, end: 20070511
  8. CLOFARABINE. MFR: GENZYME [Suspect]
     Indication: ACUTE LYMPHOCYTIC LEUKAEMIA
     Dosage: 28 MG QD IV
     Route: 042
     Dates: start: 20070626, end: 20070629
  9. ETOPOSIDE [Suspect]
     Indication: ACUTE LYMPHOCYTIC LEUKAEMIA
     Dosage: 140 MG QD X 5 IV
     Route: 042
     Dates: start: 20060908, end: 20060912
  10. ETOPOSIDE [Suspect]
     Indication: ACUTE LYMPHOCYTIC LEUKAEMIA
     Dosage: 140 MG QD IV
     Route: 042
     Dates: start: 20061013, end: 20061016
  11. ETOPOSIDE [Suspect]
     Indication: ACUTE LYMPHOCYTIC LEUKAEMIA
     Dosage: 145 MG QD IV
     Route: 042
     Dates: start: 20061124, end: 20061127
  12. ETOPOSIDE [Suspect]
     Indication: ACUTE LYMPHOCYTIC LEUKAEMIA
     Dosage: 150 MG QD IV
     Route: 042
     Dates: start: 20061226, end: 20061226
  13. ETOPOSIDE [Suspect]
     Indication: ACUTE LYMPHOCYTIC LEUKAEMIA
     Dates: start: 20070131, end: 20070203
  14. ETOPOSIDE [Suspect]
     Indication: ACUTE LYMPHOCYTIC LEUKAEMIA
     Dates: start: 20070320, end: 20070323
  15. ETOPOSIDE [Suspect]
     Indication: ACUTE LYMPHOCYTIC LEUKAEMIA
     Dosage: 145 MG QD IV
     Route: 042
     Dates: start: 20070508, end: 20070511
  16. ETOPOSIDE [Suspect]
     Indication: ACUTE LYMPHOCYTIC LEUKAEMIA
     Dosage: 140 MG QD IV
     Route: 042
     Dates: start: 20070626, end: 20070629
  17. CYCLOPHOSPHAMIDE [Suspect]
     Indication: ACUTE LYMPHOCYTIC LEUKAEMIA
     Dosage: 615 MG QD X 5 IV
     Route: 042
     Dates: start: 20060908, end: 20060912
  18. CYCLOPHOSPHAMIDE [Suspect]
     Indication: ACUTE LYMPHOCYTIC LEUKAEMIA
     Dosage: 620 MG QD IV
     Route: 042
     Dates: start: 20061013, end: 20061016
  19. CYCLOPHOSPHAMIDE [Suspect]
     Indication: ACUTE LYMPHOCYTIC LEUKAEMIA
     Dosage: 640 MG QD IV
     Route: 042
     Dates: start: 20061124, end: 20061127
  20. CYCLOPHOSPHAMIDE [Suspect]
     Indication: ACUTE LYMPHOCYTIC LEUKAEMIA
     Dates: start: 20061226, end: 20061229
  21. CYCLOPHOSPHAMIDE [Suspect]
     Indication: ACUTE LYMPHOCYTIC LEUKAEMIA
     Dates: start: 20070131, end: 20070203
  22. CYCLOPHOSPHAMIDE [Suspect]
     Indication: ACUTE LYMPHOCYTIC LEUKAEMIA
     Dates: start: 20070320, end: 20070323
  23. CYCLOPHOSPHAMIDE [Suspect]
     Indication: ACUTE LYMPHOCYTIC LEUKAEMIA
     Dosage: 634 MG QD IV
     Route: 042
     Dates: start: 20070508, end: 20070511
  24. CYCLOPHOSPHAMIDE [Suspect]
     Indication: ACUTE LYMPHOCYTIC LEUKAEMIA
     Dosage: 620 MG QD IV
     Route: 042
     Dates: start: 20070626, end: 20070629
  25. ACETAMINOPHEN [Concomitant]
  26. GABAPENTIN [Concomitant]
  27. SENNA-S [Concomitant]
  28. MIRALAX [Concomitant]
  29. METHADONE HCL [Concomitant]
  30. BACTRIM [Concomitant]
  31. VORICONAZOLE [Concomitant]
  32. VALACYCLOVIR [Concomitant]

REACTIONS (14)
  - CAECITIS [None]
  - COUGH [None]
  - EPISTAXIS [None]
  - FATIGUE [None]
  - FEBRILE NEUTROPENIA [None]
  - HERPES ZOSTER [None]
  - HYPOKALAEMIA [None]
  - LOWER RESPIRATORY TRACT INFECTION FUNGAL [None]
  - LUNG DISORDER [None]
  - MUSCLE SPASMS [None]
  - ORAL INTAKE REDUCED [None]
  - PHOTOPHOBIA [None]
  - THROMBOCYTOPENIA [None]
  - VARICELLA [None]
